FAERS Safety Report 10688701 (Version 3)
Quarter: 2015Q1

REPORT INFORMATION
  Report Type: Report from Study
  Country: IE (occurrence: IE)
  Receive Date: 20150102
  Receipt Date: 20150122
  Transmission Date: 20150720
  Serious: Yes (Death, Other)
  Sender: FDA-Public Use
  Company Number: IE-GILEAD-2014-0129848

PATIENT
  Age: 44 Year
  Sex: Female

DRUGS (17)
  1. GALFER [Concomitant]
     Active Substance: IRON
     Indication: IRON DEFICIENCY ANAEMIA
     Route: 048
  2. RIFAXIMIN [Concomitant]
     Active Substance: RIFAXIMIN
     Indication: HEPATIC ENCEPHALOPATHY
     Route: 048
  3. PROGRAF [Concomitant]
     Active Substance: TACROLIMUS\TACROLIMUS ANHYDROUS
     Indication: LIVER TRANSPLANT
  4. LEDIPASVIR/SOFOSBUVIR [Suspect]
     Active Substance: LEDIPASVIR\SOFOSBUVIR
     Indication: HEPATITIS C
     Dosage: 1 DF, QD
     Route: 048
     Dates: start: 20141218
  5. COPEGUS [Suspect]
     Active Substance: RIBAVIRIN
     Indication: HEPATITIS C
     Dosage: 400 MG, BID
     Route: 048
     Dates: start: 20141218, end: 20141224
  6. CLEXANE [Suspect]
     Active Substance: ENOXAPARIN SODIUM
     Indication: PORTAL VEIN THROMBOSIS
     Dosage: 20 MG, QD
     Route: 058
     Dates: start: 20141215, end: 20141224
  7. GLICLAZIDE [Concomitant]
     Active Substance: GLICLAZIDE
     Indication: DIABETES MELLITUS
     Route: 048
  8. CALCICHEW D3 FORTE [Concomitant]
     Active Substance: CALCIUM\CHOLECALCIFEROL
     Indication: OSTEOPOROSIS
     Route: 048
  9. CENTRUM                            /02267801/ [Concomitant]
     Indication: NUTRITIONAL SUPPLEMENTATION
     Route: 048
  10. MAGNESIUM [Concomitant]
     Active Substance: MAGNESIUM
     Route: 048
  11. MOVICOL                            /08437601/ [Concomitant]
     Indication: CONSTIPATION PROPHYLAXIS
     Route: 048
  12. PHOSPHATE                          /01053101/ [Concomitant]
     Route: 048
  13. OMEPRAZOLE. [Concomitant]
     Active Substance: OMEPRAZOLE
     Indication: PROPHYLAXIS
     Route: 048
  14. THIAMINE [Concomitant]
     Active Substance: THIAMINE
     Indication: NUTRITIONAL SUPPLEMENTATION
     Route: 048
  15. PREDNISOLONE. [Concomitant]
     Active Substance: PREDNISOLONE
     Indication: LIVER TRANSPLANT
     Route: 065
  16. LACTULOSE. [Concomitant]
     Active Substance: LACTULOSE
     Indication: CONSTIPATION PROPHYLAXIS
     Route: 048
  17. LEVOTHYROXINE [Concomitant]
     Active Substance: LEVOTHYROXINE
     Indication: HYPOTHYROIDISM
     Route: 048

REACTIONS (5)
  - Subarachnoid haemorrhage [Fatal]
  - Gastrointestinal haemorrhage [Fatal]
  - Cerebellar haemorrhage [Fatal]
  - Coma scale abnormal [Fatal]
  - Hydrocephalus [Fatal]

NARRATIVE: CASE EVENT DATE: 20141224
